FAERS Safety Report 7111989-4 (Version None)
Quarter: 2010Q4

REPORT INFORMATION
  Report Type: 
  Country: None (occurrence: None)
  Receive Date: 20101119
  Receipt Date: 20100208
  Transmission Date: 20110411
  Serious: No
  Sender: FDA-Public Use
  Company Number: US-PFIZER INC-2010016974

PATIENT
  Age: 70 Year
  Sex: Female

DRUGS (1)
  1. ZYVOX [Suspect]
     Indication: ARTHRITIS BACTERIAL

REACTIONS (1)
  - DIARRHOEA [None]
